FAERS Safety Report 7735823-4 (Version None)
Quarter: 2011Q3

REPORT INFORMATION
  Report Type: 
  Country: None (occurrence: None)
  Receive Date: 20110908
  Receipt Date: 20110829
  Transmission Date: 20111222
  Serious: No
  Sender: FDA-Public Use
  Company Number: US-BIOGENIDEC-2011BI033297

PATIENT
  Age: 41 Year
  Sex: Female

DRUGS (1)
  1. TYSABRI [Suspect]
     Indication: MULTIPLE SCLEROSIS
     Route: 042
     Dates: start: 20100914

REACTIONS (7)
  - PHARYNGEAL OEDEMA [None]
  - DRY THROAT [None]
  - MUSCLE SPASMS [None]
  - PHARYNGEAL DISORDER [None]
  - THROAT TIGHTNESS [None]
  - DYSPHONIA [None]
  - OROPHARYNGEAL PAIN [None]
